FAERS Safety Report 8742221 (Version 3)
Quarter: 2012Q4

REPORT INFORMATION
  Report Type: 
  Country: IT (occurrence: IT)
  Receive Date: 20120824
  Receipt Date: 20121031
  Transmission Date: 20130627
  Serious: Yes (Hospitalization)
  Sender: FDA-Public Use
  Company Number: PHHY2012IT072711

PATIENT
  Age: 87 Year
  Sex: Female

DRUGS (4)
  1. COTAREG [Suspect]
     Indication: HYPERTENSION
     Dosage: 1 DF, daily
     Route: 048
     Dates: start: 20110523, end: 20120522
  2. ALLOPURINOL [Concomitant]
     Dosage: 1 DF, per day
  3. DONEPEZIL HYDROCHLORIDE [Concomitant]
     Dosage: 1 DF, per day
  4. ZOLPIDEM [Concomitant]
     Dosage: 10 mg, per day

REACTIONS (2)
  - Cardiac arrest [Recovered/Resolved]
  - Hypokalaemia [Recovered/Resolved]
